FAERS Safety Report 11699547 (Version 1)
Quarter: 2015Q4

REPORT INFORMATION
  Report Type: Report from Study
  Country: US (occurrence: US)
  Receive Date: 20151105
  Receipt Date: 20151105
  Transmission Date: 20160304
  Serious: No
  Sender: FDA-Public Use
  Company Number: US-AMGEN-USASL2015115252

PATIENT
  Age: 17 Year
  Sex: Male

DRUGS (4)
  1. LITHIUM. [Concomitant]
     Active Substance: LITHIUM
     Dosage: UNK
  2. DICLOFENAC [Concomitant]
     Active Substance: DICLOFENAC
     Dosage: UNK
  3. ENBREL [Suspect]
     Active Substance: ETANERCEPT
     Indication: RHEUMATOID ARTHRITIS
     Dosage: UNK
     Route: 065
  4. LANSOPRAZOLE. [Concomitant]
     Active Substance: LANSOPRAZOLE
     Dosage: UNK

REACTIONS (5)
  - Pilonidal cyst [Unknown]
  - Cyst [Unknown]
  - Synovial cyst [Unknown]
  - Off label use [Unknown]
  - Condition aggravated [Unknown]
